FAERS Safety Report 6092865-5 (Version None)
Quarter: 2009Q1

REPORT INFORMATION
  Report Type: 
  Country: None (occurrence: None)
  Receive Date: 20090225
  Receipt Date: 20090216
  Transmission Date: 20090719
  Serious: Yes (Hospitalization, Other)
  Sender: FDA-Public Use
  Company Number: IR-ROXANE LABORATORIES, INC.-2009-RO-00156RO

PATIENT
  Age: 3 Year
  Sex: Male

DRUGS (12)
  1. MERCAPTOPURINE [Suspect]
     Indication: ACUTE LYMPHOCYTIC LEUKAEMIA
  2. METHOTREXATE [Suspect]
     Indication: ACUTE LYMPHOCYTIC LEUKAEMIA
  3. ANTIBIOTIC THERAPY [Suspect]
     Indication: LYMPHADENOPATHY
  4. VINCRISTINE [Suspect]
     Indication: HODGKIN'S DISEASE MIXED CELLULARITY STAGE III
  5. PREDNISOLONE [Suspect]
     Indication: HODGKIN'S DISEASE MIXED CELLULARITY STAGE III
  6. PROCARBAZINE [Suspect]
     Indication: HODGKIN'S DISEASE MIXED CELLULARITY STAGE III
  7. DOXORUBICIN HCL [Suspect]
     Indication: HODGKIN'S DISEASE MIXED CELLULARITY STAGE III
  8. CO(P)P [Suspect]
     Indication: HODGKIN'S DISEASE MIXED CELLULARITY STAGE III
  9. DOXORUBICIN HCL [Concomitant]
     Indication: HODGKIN'S DISEASE MIXED CELLULARITY STAGE IV
  10. BLEOMYCIN [Concomitant]
     Indication: HODGKIN'S DISEASE MIXED CELLULARITY STAGE IV
  11. VINBLASTINE [Concomitant]
     Indication: HODGKIN'S DISEASE MIXED CELLULARITY STAGE IV
  12. DACARBAZIN [Concomitant]
     Indication: HODGKIN'S DISEASE MIXED CELLULARITY STAGE IV

REACTIONS (3)
  - HODGKIN'S DISEASE MIXED CELLULARITY RECURRENT [None]
  - HODGKIN'S DISEASE MIXED CELLULARITY STAGE III [None]
  - LYMPHADENITIS [None]
